FAERS Safety Report 5124743-X (Version None)
Quarter: 2006Q4

REPORT INFORMATION
  Report Type: 
  Country: None (occurrence: None)
  Receive Date: 20061011
  Receipt Date: 20060927
  Transmission Date: 20070319
  Serious: Yes (Other)
  Sender: FDA-Public Use
  Company Number: PHEH2006US12255

PATIENT
  Age: 63 Year
  Sex: Female

DRUGS (5)
  1. LOTENSIN HCT [Suspect]
     Indication: HYPERTENSION
     Dosage: 20 MG BEN/12.5 MG HCT QD
     Dates: start: 19930101, end: 20040101
  2. BENAZEPRIL HYDROCHLORIDE,HYDROCHLOROTHIAZIDE [Suspect]
     Indication: HYPERTENSION
     Dosage: 20 MG BEN/12.5 MG HCT QD
     Dates: start: 20040101
  3. TYLENOL [Concomitant]
  4. ASPIRIN [Concomitant]
  5. CALCIUM GLUCONATE [Concomitant]

REACTIONS (4)
  - GLAUCOMA [None]
  - INTRAOCULAR PRESSURE DECREASED [None]
  - OPTIC DISC HAEMORRHAGE [None]
  - SCOTOMA [None]
